FAERS Safety Report 9740232 (Version 1)
Quarter: 2013Q4

REPORT INFORMATION
  Report Type: Spontaneous
  Country: US (occurrence: US)
  Receive Date: 20131209
  Receipt Date: 20131209
  Transmission Date: 20140711
  Serious: No
  Sender: FDA-Public Use
  Company Number: US-BIOGENIDEC-2013BI090440

PATIENT
  Sex: Female

DRUGS (9)
  1. TECFIDERA [Suspect]
     Indication: MULTIPLE SCLEROSIS
     Dates: start: 20130812
  2. ALPRAZOLAM [Concomitant]
  3. BUPROPION [Concomitant]
  4. GABAPENTIN [Concomitant]
  5. HYDROCODONE [Concomitant]
  6. OXYCODONE [Concomitant]
  7. TOPIRAMATE [Concomitant]
  8. MECLIZINE [Concomitant]
  9. MELOXICAM [Concomitant]

REACTIONS (2)
  - Flushing [Not Recovered/Not Resolved]
  - Hot flush [Not Recovered/Not Resolved]
